FAERS Safety Report 4882886-X (Version None)
Quarter: 2006Q1

REPORT INFORMATION
  Report Type: 
  Country: None (occurrence: None)
  Receive Date: 20060118
  Receipt Date: 20060105
  Transmission Date: 20060701
  Serious: Yes (Other)
  Sender: FDA-Public Use
  Company Number: PR-MERCK-0601USA00546

PATIENT
  Age: 82 Year
  Sex: Male
  Weight: 91 kg

DRUGS (1)
  1. VIOXX [Suspect]
     Indication: ARTHRITIS
     Route: 048
     Dates: start: 20010101, end: 20040101

REACTIONS (5)
  - CEREBROVASCULAR ACCIDENT [None]
  - DEMENTIA [None]
  - DIZZINESS [None]
  - SCHIZOPHRENIA [None]
  - SICK SINUS SYNDROME [None]
